FAERS Safety Report 25723176 (Version 1)
Quarter: 2025Q3

REPORT INFORMATION
  Report Type: Report from Study
  Country: AR (occurrence: AR)
  Receive Date: 20250825
  Receipt Date: 20250825
  Transmission Date: 20251020
  Serious: Yes (Other)
  Sender: ABBVIE
  Company Number: AR-ABBVIE-6429714

PATIENT
  Age: 47 Year
  Sex: Female

DRUGS (1)
  1. RINVOQ [Suspect]
     Active Substance: UPADACITINIB
     Indication: Colitis ulcerative
     Dosage: 30MG X 30 TABLETS
     Route: 048
     Dates: start: 20231123, end: 20250807

REACTIONS (4)
  - Joint range of motion decreased [Unknown]
  - Spondylitis [Not Recovered/Not Resolved]
  - Bursitis [Not Recovered/Not Resolved]
  - Cardiovascular disorder [Unknown]

NARRATIVE: CASE EVENT DATE: 20250101
